FAERS Safety Report 9476048 (Version 3)
Quarter: 2014Q1

REPORT INFORMATION
  Report Type: Report from Study
  Country: IT (occurrence: IT)
  Receive Date: 20130826
  Receipt Date: 20140318
  Transmission Date: 20141002
  Serious: Yes (Hospitalization)
  Sender: FDA-Public Use
  Company Number: IT-AMGEN-ITACT2013059529

PATIENT
  Age: 75 Year
  Sex: Male
  Weight: 55 kg

DRUGS (6)
  1. PANITUMUMAB [Suspect]
     Indication: ADENOCARCINOMA GASTRIC
     Dosage: 324 MG, UNK
     Route: 042
     Dates: start: 20120321, end: 20130418
  2. CISPLATINO [Concomitant]
     Indication: ADENOCARCINOMA GASTRIC
     Dosage: 50 MG, UNK
     Route: 042
     Dates: start: 20120321
  3. TAXOTERE [Concomitant]
     Indication: ADENOCARCINOMA GASTRIC
     Dosage: 60 MG, UNK
     Route: 042
     Dates: start: 20120321
  4. 5-FLUOROURACIL [Concomitant]
     Indication: ADENOCARCINOMA GASTRIC
     Dosage: 1680 MG, Q2WK
     Route: 040
     Dates: start: 20120321, end: 20120609
  5. BISOPROLOLO [Concomitant]
     Dosage: 2.5 MG, UNK
  6. OMEPRAZOL [Concomitant]
     Dosage: 20 MG, UNK

REACTIONS (1)
  - Asthenia [Recovered/Resolved]
